FAERS Safety Report 10515330 (Version 2)
Quarter: 2014Q4

REPORT INFORMATION
  Report Type: Spontaneous
  Country: JP (occurrence: None)
  Receive Date: 20141009
  Receipt Date: 20141125
  Transmission Date: 20150528
  Serious: Yes (Other)
  Sender: FDA-Public Use
  Company Number: JP-20140322

PATIENT
  Age: 8 Decade
  Sex: Female

DRUGS (1)
  1. LIPIODOL ULTRA-FLUIDE [Suspect]
     Active Substance: ETHIODIZED OIL
     Indication: THERAPEUTIC EMBOLISATION
     Route: 013
     Dates: start: 201109, end: 201109

REACTIONS (2)
  - Product use issue [None]
  - Pyloric stenosis [None]

NARRATIVE: CASE EVENT DATE: 20120130
